APPROVED DRUG PRODUCT: BIMATOPROST
Active Ingredient: BIMATOPROST
Strength: 0.03%
Dosage Form/Route: SOLUTION/DROPS;TOPICAL
Application: A203051 | Product #001
Applicant: HIKMA PHARMACEUTICALS USA INC
Approved: Oct 9, 2018 | RLD: No | RS: No | Type: DISCN